FAERS Safety Report 7476666-9 (Version None)
Quarter: 2011Q2

REPORT INFORMATION
  Report Type: 
  Country: None (occurrence: None)
  Receive Date: 20110512
  Receipt Date: 20110427
  Transmission Date: 20111010
  Serious: No
  Sender: FDA-Public Use
  Company Number: US-B.I. PHARMACEUTICALS,INC./RIDGEFIELD-2011-BP-11945BP

PATIENT
  Age: 51 Year
  Sex: Male

DRUGS (2)
  1. FLOMAX [Suspect]
     Indication: NOCTURIA
     Dosage: 0.4 MG
     Route: 048
     Dates: start: 20110406
  2. MULTI-VITAMIN [Concomitant]
     Indication: PROPHYLAXIS

REACTIONS (1)
  - DRUG INEFFECTIVE [None]
